FAERS Safety Report 9033837 (Version 1)
Quarter: 2013Q1

REPORT INFORMATION
  Report Type: Spontaneous
  Country: US (occurrence: US)
  Receive Date: 20130128
  Receipt Date: 20130128
  Transmission Date: 20140127
  Serious: Yes (Other)
  Sender: FDA-Public Use
  Company Number: US-AMGEN-USASP2012070445

PATIENT
  Sex: Female
  Weight: 54.42 kg

DRUGS (18)
  1. ENBREL [Suspect]
     Indication: PRODUCT USED FOR UNKNOWN INDICATION
     Dosage: 50 MG, QWK
     Route: 058
  2. CRESTOR [Concomitant]
     Dosage: 10 MG, UNK
  3. ASPIRIN [Concomitant]
     Dosage: 81 MG, UNK
  4. DONEPEZIL [Concomitant]
     Dosage: 5 MG, UNK
  5. FUROSEMIDE [Concomitant]
     Dosage: 40 MG, UNK
  6. AMITRIPTYLIN [Concomitant]
     Dosage: 50 MG, UNK
  7. CYCLOBENZAPRINE [Concomitant]
     Dosage: 5 MG, UNK
  8. DIGOXIN [Concomitant]
     Dosage: 0.125 MG, UNK
  9. ALBUTEROL                          /00139501/ [Concomitant]
     Dosage: 2 MG, UNK
  10. HYDROCODONE W/ACETAMINOPHEN [Concomitant]
     Dosage: 7.5 - 325
  11. ALENDRONATE [Concomitant]
     Dosage: 5 MG, UNK
  12. CALCIUM [Concomitant]
     Dosage: 500 UNK, UNK
  13. FISH OIL [Concomitant]
     Dosage: UNK
  14. SPIRIVA HANDIHALER [Concomitant]
     Dosage: UNK
  15. POTASSIUM [Concomitant]
     Dosage: 75 MG, UNK
  16. GABAPENTIN [Concomitant]
     Dosage: 400 MG, UNK
  17. WARFARIN [Concomitant]
     Dosage: 1 MG, UNK
  18. PREDNISONE [Concomitant]
     Dosage: 1 MG, UNK

REACTIONS (2)
  - Lung neoplasm malignant [Unknown]
  - Herpes zoster [Recovered/Resolved]
